FAERS Safety Report 8242547 (Version 7)
Quarter: 2025Q4

REPORT INFORMATION
  Report Type: Spontaneous
  Country: EU (occurrence: EU)
  Receive Date: 20111114
  Receipt Date: 20251117
  Transmission Date: 20260117
  Serious: Yes (Death, Hospitalization, Other)
  Sender: MYLAN
  Company Number: None

PATIENT
  Age: 72 Year
  Sex: Female
  Weight: 103 kg

DRUGS (48)
  1. ZELDOX [Suspect]
     Active Substance: ZIPRASIDONE
     Indication: Schizoaffective disorder
     Dosage: 80 MILLIGRAM, QD,(STRENGTH: 40 MG. THE EXACT START DATE IS NOT KNOWN, BUT AT LEAST BACK TO 2005)
     Dates: end: 20111023
  2. ZELDOX [Suspect]
     Active Substance: ZIPRASIDONE
     Dosage: 80 MILLIGRAM, QD,(STRENGTH: 40 MG. THE EXACT START DATE IS NOT KNOWN, BUT AT LEAST BACK TO 2005)
     Route: 048
     Dates: end: 20111023
  3. ZELDOX [Suspect]
     Active Substance: ZIPRASIDONE
     Dosage: 80 MILLIGRAM, QD,(STRENGTH: 40 MG. THE EXACT START DATE IS NOT KNOWN, BUT AT LEAST BACK TO 2005)
     Route: 048
     Dates: end: 20111023
  4. ZELDOX [Suspect]
     Active Substance: ZIPRASIDONE
     Dosage: 80 MILLIGRAM, QD,(STRENGTH: 40 MG. THE EXACT START DATE IS NOT KNOWN, BUT AT LEAST BACK TO 2005)
     Dates: end: 20111023
  5. MIRTAZAPINE [Suspect]
     Active Substance: MIRTAZAPINE
     Indication: Schizoaffective disorder
     Dosage: 30 MILLIGRAM, QD,(STRENGTH 30 MG)
     Dates: start: 2011, end: 20111023
  6. MIRTAZAPINE [Suspect]
     Active Substance: MIRTAZAPINE
     Indication: Depression
     Dosage: 30 MILLIGRAM, QD,(STRENGTH 30 MG)
     Route: 048
     Dates: start: 2011, end: 20111023
  7. MIRTAZAPINE [Suspect]
     Active Substance: MIRTAZAPINE
     Dosage: 30 MILLIGRAM, QD,(STRENGTH 30 MG)
     Route: 048
     Dates: start: 2011, end: 20111023
  8. MIRTAZAPINE [Suspect]
     Active Substance: MIRTAZAPINE
     Dosage: 30 MILLIGRAM, QD,(STRENGTH 30 MG)
     Dates: start: 2011, end: 20111023
  9. LITHIUM CITRATE [Suspect]
     Active Substance: LITHIUM CITRATE
     Indication: Schizoaffective disorder
     Dosage: 1.5 DOSAGE FORM,(DOSE: 1+0+0+1.5, STRENGTH: 6 MMOL LI+)
  10. LITHIUM CITRATE [Suspect]
     Active Substance: LITHIUM CITRATE
     Dosage: 1.5 DOSAGE FORM,(DOSE: 1+0+0+1.5, STRENGTH: 6 MMOL LI+)
     Route: 048
  11. LITHIUM CITRATE [Suspect]
     Active Substance: LITHIUM CITRATE
     Dosage: 1.5 DOSAGE FORM,(DOSE: 1+0+0+1.5, STRENGTH: 6 MMOL LI+)
     Route: 048
  12. LITHIUM CITRATE [Suspect]
     Active Substance: LITHIUM CITRATE
     Dosage: 1.5 DOSAGE FORM,(DOSE: 1+0+0+1.5, STRENGTH: 6 MMOL LI+)
  13. CIPRALEX [Suspect]
     Active Substance: ESCITALOPRAM OXALATE
     Indication: Schizoaffective disorder
     Dosage: 30 MILLIGRAM, QD,(EXACT START DATE IS NOT KNOWN, BUT AT LEAST BACK TO 2005)
     Dates: end: 20111023
  14. CIPRALEX [Suspect]
     Active Substance: ESCITALOPRAM OXALATE
     Dosage: 30 MILLIGRAM, QD,(EXACT START DATE IS NOT KNOWN, BUT AT LEAST BACK TO 2005)
     Route: 048
     Dates: end: 20111023
  15. CIPRALEX [Suspect]
     Active Substance: ESCITALOPRAM OXALATE
     Dosage: 30 MILLIGRAM, QD,(EXACT START DATE IS NOT KNOWN, BUT AT LEAST BACK TO 2005)
     Route: 048
     Dates: end: 20111023
  16. CIPRALEX [Suspect]
     Active Substance: ESCITALOPRAM OXALATE
     Dosage: 30 MILLIGRAM, QD,(EXACT START DATE IS NOT KNOWN, BUT AT LEAST BACK TO 2005)
     Dates: end: 20111023
  17. FRAGMIN [Concomitant]
     Active Substance: DALTEPARIN SODIUM
     Indication: Product used for unknown indication
     Dosage: UNK
  18. FRAGMIN [Concomitant]
     Active Substance: DALTEPARIN SODIUM
     Dosage: UNK
     Route: 065
  19. FRAGMIN [Concomitant]
     Active Substance: DALTEPARIN SODIUM
     Dosage: UNK
     Route: 065
  20. FRAGMIN [Concomitant]
     Active Substance: DALTEPARIN SODIUM
     Dosage: UNK
  21. FERROUS SULFATE [Concomitant]
     Active Substance: FERROUS SULFATE
     Indication: Product used for unknown indication
     Dosage: 100 MILLIGRAM, QD,(UPDATE (13-JUN-2012): DOSE 100)
     Dates: end: 20111023
  22. FERROUS SULFATE [Concomitant]
     Active Substance: FERROUS SULFATE
     Dosage: 100 MILLIGRAM, QD,(UPDATE (13-JUN-2012): DOSE 100)
     Route: 065
     Dates: end: 20111023
  23. FERROUS SULFATE [Concomitant]
     Active Substance: FERROUS SULFATE
     Dosage: 100 MILLIGRAM, QD,(UPDATE (13-JUN-2012): DOSE 100)
     Route: 065
     Dates: end: 20111023
  24. FERROUS SULFATE [Concomitant]
     Active Substance: FERROUS SULFATE
     Dosage: 100 MILLIGRAM, QD,(UPDATE (13-JUN-2012): DOSE 100)
     Dates: end: 20111023
  25. BENDROFLUMETHIAZIDE\POTASSIUM CHLORIDE [Concomitant]
     Active Substance: BENDROFLUMETHIAZIDE\POTASSIUM CHLORIDE
     Indication: Product used for unknown indication
     Dosage: 1 DOSAGE FORM, QD,(DOSE 1 PIECE DAILY. START DATE IS UNKNOWN)
     Dates: end: 20111023
  26. BENDROFLUMETHIAZIDE\POTASSIUM CHLORIDE [Concomitant]
     Active Substance: BENDROFLUMETHIAZIDE\POTASSIUM CHLORIDE
     Dosage: 1 DOSAGE FORM, QD,(DOSE 1 PIECE DAILY. START DATE IS UNKNOWN)
     Route: 065
     Dates: end: 20111023
  27. BENDROFLUMETHIAZIDE\POTASSIUM CHLORIDE [Concomitant]
     Active Substance: BENDROFLUMETHIAZIDE\POTASSIUM CHLORIDE
     Dosage: 1 DOSAGE FORM, QD,(DOSE 1 PIECE DAILY. START DATE IS UNKNOWN)
     Route: 065
     Dates: end: 20111023
  28. BENDROFLUMETHIAZIDE\POTASSIUM CHLORIDE [Concomitant]
     Active Substance: BENDROFLUMETHIAZIDE\POTASSIUM CHLORIDE
     Dosage: 1 DOSAGE FORM, QD,(DOSE 1 PIECE DAILY. START DATE IS UNKNOWN)
     Dates: end: 20111023
  29. Furix [Concomitant]
     Indication: Product used for unknown indication
     Dosage: UNK
  30. Furix [Concomitant]
     Dosage: UNK
     Route: 065
  31. Furix [Concomitant]
     Dosage: UNK
     Route: 065
  32. Furix [Concomitant]
     Dosage: UNK
  33. AMLODIPINE [Concomitant]
     Active Substance: AMLODIPINE BESYLATE
     Indication: Product used for unknown indication
     Dosage: UNK
  34. AMLODIPINE [Concomitant]
     Active Substance: AMLODIPINE BESYLATE
     Dosage: UNK
     Route: 065
  35. AMLODIPINE [Concomitant]
     Active Substance: AMLODIPINE BESYLATE
     Dosage: UNK
     Route: 065
  36. AMLODIPINE [Concomitant]
     Active Substance: AMLODIPINE BESYLATE
     Dosage: UNK
  37. ALPRAZOLAM [Concomitant]
     Active Substance: ALPRAZOLAM
     Indication: Product used for unknown indication
     Dosage: 0.5 MILLIGRAM DAILY,(UPDATE (13-JUN-2012): DOSE 0.5)
     Route: 065
     Dates: start: 20111022
  38. ALPRAZOLAM [Concomitant]
     Active Substance: ALPRAZOLAM
     Dosage: 0.5 MILLIGRAM DAILY,(UPDATE (13-JUN-2012): DOSE 0.5)
     Dates: start: 20111022
  39. ALPRAZOLAM [Concomitant]
     Active Substance: ALPRAZOLAM
     Dosage: 0.5 MILLIGRAM DAILY,(UPDATE (13-JUN-2012): DOSE 0.5)
     Dates: start: 20111022
  40. ALPRAZOLAM [Concomitant]
     Active Substance: ALPRAZOLAM
     Dosage: 0.5 MILLIGRAM DAILY,(UPDATE (13-JUN-2012): DOSE 0.5)
     Route: 065
     Dates: start: 20111022
  41. ALPRAZOLAM [Concomitant]
     Active Substance: ALPRAZOLAM
     Dosage: 0.5 MILLIGRAM, QD
     Route: 065
  42. ALPRAZOLAM [Concomitant]
     Active Substance: ALPRAZOLAM
     Dosage: 0.5 MILLIGRAM, QD
  43. ALPRAZOLAM [Concomitant]
     Active Substance: ALPRAZOLAM
     Dosage: 0.5 MILLIGRAM, QD
  44. ALPRAZOLAM [Concomitant]
     Active Substance: ALPRAZOLAM
     Dosage: 0.5 MILLIGRAM, QD
     Route: 065
  45. POTASSIUM CHLORIDE [Concomitant]
     Active Substance: POTASSIUM CHLORIDE
     Indication: Product used for unknown indication
     Dosage: 1 DOSAGE FORM, QD,(UPDATE (13JUN2012): DOSE 1, CENTYL WITH POTASSIUM CHLORIDE)
     Dates: end: 20111023
  46. POTASSIUM CHLORIDE [Concomitant]
     Active Substance: POTASSIUM CHLORIDE
     Dosage: 1 DOSAGE FORM, QD,(UPDATE (13JUN2012): DOSE 1, CENTYL WITH POTASSIUM CHLORIDE)
     Route: 065
     Dates: end: 20111023
  47. POTASSIUM CHLORIDE [Concomitant]
     Active Substance: POTASSIUM CHLORIDE
     Dosage: 1 DOSAGE FORM, QD,(UPDATE (13JUN2012): DOSE 1, CENTYL WITH POTASSIUM CHLORIDE)
     Route: 065
     Dates: end: 20111023
  48. POTASSIUM CHLORIDE [Concomitant]
     Active Substance: POTASSIUM CHLORIDE
     Dosage: 1 DOSAGE FORM, QD,(UPDATE (13JUN2012): DOSE 1, CENTYL WITH POTASSIUM CHLORIDE)
     Dates: end: 20111023

REACTIONS (27)
  - Neuroleptic malignant syndrome [Fatal]
  - Lactic acidosis [Fatal]
  - Organ failure [Fatal]
  - Acute kidney injury [Fatal]
  - Rhabdomyolysis [Fatal]
  - Cardiac hypertrophy [Fatal]
  - Lacunar infarction [Fatal]
  - Hepatic cirrhosis [Fatal]
  - Renal failure [Fatal]
  - Confusional state [Fatal]
  - Pyrexia [Fatal]
  - Urinary tract infection [Fatal]
  - Hyperdynamic left ventricle [Fatal]
  - Hepatic enzyme increased [Fatal]
  - Depressed level of consciousness [Fatal]
  - Hypertension [Fatal]
  - Fall [Fatal]
  - Dyspnoea [Fatal]
  - Internal fixation of fracture [Fatal]
  - Humerus fracture [Fatal]
  - Constipation [Fatal]
  - Liver disorder [Fatal]
  - Myoglobin blood increased [Fatal]
  - Blood creatine phosphokinase increased [Fatal]
  - Hyperventilation [Fatal]
  - Myocardial infarction [Unknown]
  - Off label use [Unknown]

NARRATIVE: CASE EVENT DATE: 20111021
